FAERS Safety Report 15867712 (Version 2)
Quarter: 2019Q1

REPORT INFORMATION
  Report Type: Spontaneous
  Country: US (occurrence: US)
  Receive Date: 20190125
  Receipt Date: 20190130
  Transmission Date: 20190417
  Serious: Yes (Hospitalization)
  Sender: FDA-Public Use
  Company Number: US-VERTEX PHARMACEUTICALS-2019-000582

PATIENT
  Sex: Female

DRUGS (16)
  1. ALBUTEROL                          /00139501/ [Concomitant]
     Active Substance: ALBUTEROL
  2. TOBI [Concomitant]
     Active Substance: TOBRAMYCIN
     Route: 055
  3. PULMOZYME [Concomitant]
     Active Substance: DORNASE ALFA
  4. CREON [Concomitant]
     Active Substance: PANCRELIPASE AMYLASE\PANCRELIPASE LIPASE\PANCRELIPASE PROTEASE
  5. LANTUS [Concomitant]
     Active Substance: INSULIN GLARGINE
  6. ZYVOX [Concomitant]
     Active Substance: LINEZOLID
  7. SALINE                             /00075401/ [Concomitant]
     Active Substance: SODIUM CHLORIDE
  8. VITAMIN K [Concomitant]
     Active Substance: PHYTONADIONE
  9. MIRALAX [Concomitant]
     Active Substance: POLYETHYLENE GLYCOL 3350
  10. AQUADEKS                           /07679501/ [Concomitant]
     Active Substance: MINERALS\VITAMINS
  11. AZITHROMYCIN ANHYDROUS. [Concomitant]
     Active Substance: AZITHROMYCIN ANHYDROUS
  12. SYMDEKO [Suspect]
     Active Substance: IVACAFTOR\TEZACAFTOR
     Indication: CYSTIC FIBROSIS
     Dosage: 100 MG TEZACAFTOR/ 150 MG IVACAFTOR AM; 150 MG IVACAFTOR PM
     Route: 048
     Dates: start: 20180929
  13. NASONEX [Concomitant]
     Active Substance: MOMETASONE FUROATE
  14. PREVACID [Concomitant]
     Active Substance: LANSOPRAZOLE
  15. MAGNESIUM [Concomitant]
     Active Substance: MAGNESIUM
  16. NOVOLOG [Concomitant]
     Active Substance: INSULIN ASPART

REACTIONS (1)
  - Surgery [Not Recovered/Not Resolved]
